FAERS Safety Report 10034128 (Version 1)
Quarter: 2014Q1

REPORT INFORMATION
  Report Type: Spontaneous
  Country: US (occurrence: None)
  Receive Date: 20140321
  Receipt Date: 20140321
  Transmission Date: 20141002
  Serious: Yes (Death, Life-Threatening)
  Sender: FDA-Public Use
  Company Number: FK201400876

PATIENT
  Age: 75 Year
  Sex: Female

DRUGS (3)
  1. AMIODARONE HCL [Suspect]
     Indication: PRODUCT USED FOR UNKNOWN INDICATION
  2. METHYLPREDNISOLONE [Suspect]
     Indication: PRODUCT USED FOR UNKNOWN INDICATION
  3. WARFARIN (WARFARIN) [Suspect]
     Indication: PRODUCT USED FOR UNKNOWN INDICATION

REACTIONS (9)
  - Zygomycosis [None]
  - Pulmonary toxicity [None]
  - Gastrointestinal haemorrhage [None]
  - Interstitial lung disease [None]
  - Normochromic normocytic anaemia [None]
  - Pleural effusion [None]
  - Atelectasis [None]
  - Diarrhoea haemorrhagic [None]
  - Anal ulcer [None]
